FAERS Safety Report 13120602 (Version 4)
Quarter: 2018Q4

REPORT INFORMATION
  Report Type: Spontaneous
  Country: US (occurrence: US)
  Receive Date: 20170117
  Receipt Date: 20181214
  Transmission Date: 20190204
  Serious: No
  Sender: FDA-Public Use
  Company Number: US-PFIZER INC-2017018392

PATIENT
  Sex: Female

DRUGS (1)
  1. XELJANZ [Suspect]
     Active Substance: TOFACITINIB CITRATE
     Indication: ALOPECIA UNIVERSALIS
     Dosage: 5 MG, 2X/DAY
     Route: 048

REACTIONS (2)
  - Cough [Unknown]
  - Product use in unapproved indication [Unknown]
